FAERS Safety Report 15671659 (Version 4)
Quarter: 2019Q1

REPORT INFORMATION
  Report Type: Report from Study
  Country: US (occurrence: US)
  Receive Date: 20181129
  Receipt Date: 20190306
  Transmission Date: 20190417
  Serious: Yes (Other)
  Sender: FDA-Public Use
  Company Number: US-TESARO-US-2018TSO04519

PATIENT
  Age: 62 Year
  Sex: Female

DRUGS (5)
  1. ZEJULA [Suspect]
     Active Substance: NIRAPARIB
     Dosage: 200 MG, QD
     Route: 048
  2. ZEJULA [Suspect]
     Active Substance: NIRAPARIB
     Indication: OVARIAN CANCER
     Dosage: 100 MG, UNK
     Route: 048
     Dates: start: 20180905
  3. AMYLASE [Concomitant]
     Active Substance: AMYLASE
     Indication: PRODUCT USE IN UNAPPROVED INDICATION
  4. ZEJULA [Suspect]
     Active Substance: NIRAPARIB
     Dosage: 200 MG, QD
     Route: 048
     Dates: start: 20180904
  5. ZEJULA [Suspect]
     Active Substance: NIRAPARIB
     Dosage: 300 MG, 3 CAPSULES BY MOUTH ONCE DAILY
     Route: 048

REACTIONS (13)
  - Sleep disorder [Unknown]
  - Amylase increased [Unknown]
  - Arthralgia [Unknown]
  - Underdose [Unknown]
  - Mania [Unknown]
  - Somnolence [Not Recovered/Not Resolved]
  - Product dose omission [Unknown]
  - Constipation [Unknown]
  - Neuropathy peripheral [Not Recovered/Not Resolved]
  - Pain in extremity [Unknown]
  - Insomnia [Not Recovered/Not Resolved]
  - Feeling abnormal [Unknown]
  - Nausea [Not Recovered/Not Resolved]

NARRATIVE: CASE EVENT DATE: 2018
